FAERS Safety Report 10377460 (Version 1)
Quarter: 2014Q1

REPORT INFORMATION
  Report Type: Spontaneous
  Country: US (occurrence: None)
  Receive Date: 20140306
  Receipt Date: 20140306
  Transmission Date: 20141002
  Serious: Yes (Hospitalization)
  Sender: FDA-Public Use
  Company Number: 163-21880-13013982

PATIENT
  Age: 71 Year
  Sex: Male

DRUGS (9)
  1. REVLIMID (LENALIDOMIDE) (CAPSULES) [Suspect]
     Indication: PLASMA CELL MYELOMA
     Dosage: 10 MG, 14 IN 14 D, PO
     Route: 048
     Dates: start: 20101202
  2. THALOMID (THALIDOMIDE) (CAPSULES) [Concomitant]
  3. CITALOPRAM HYDROBROMIDE (CITALOPRAM HYDROBROMIDE) [Concomitant]
  4. DEXAMETHASONE (DEXAMETHASONE) [Concomitant]
  5. FLUCONAZOLE (FLUCONAZOLE) [Concomitant]
  6. LEVAQUIN (LEVOFLOXACIN) [Concomitant]
  7. NYSTOP (NYSTATIN) [Concomitant]
  8. ONDANSETRON HCL (ONDANSETRON HYDROCHLORIDE) [Concomitant]
  9. PROAIR HFA (SALBUTAMOL SULFATE) [Concomitant]

REACTIONS (1)
  - Pyrexia [None]
